FAERS Safety Report 20741828 (Version 1)
Quarter: 2022Q2

REPORT INFORMATION
  Report Type: Spontaneous
  Country: US (occurrence: US)
  Receive Date: 20220423
  Receipt Date: 20220423
  Transmission Date: 20220720
  Serious: Yes (Hospitalization, Other)
  Sender: FDA-Public Use
  Company Number: US-EPICPHARMA-US-2022EPCLIT00233

PATIENT
  Age: 8 Year
  Sex: Female

DRUGS (6)
  1. AZITHROMYCIN [Suspect]
     Active Substance: AZITHROMYCIN
     Indication: Myocarditis bacterial
     Route: 042
  2. AZITHROMYCIN [Suspect]
     Active Substance: AZITHROMYCIN
     Dosage: GIVEN WITH VENO-ARTERIAL EXTRACORPOREAL MEMBRANOUS OXYGENATION SUPPORT
     Route: 042
  3. FUROSEMIDE [Concomitant]
     Active Substance: FUROSEMIDE
     Indication: Product used for unknown indication
     Route: 065
  4. MILRINONE [Concomitant]
     Active Substance: MILRINONE
     Indication: Product used for unknown indication
     Route: 065
  5. EPINEPHRINE [Concomitant]
     Active Substance: EPINEPHRINE
     Indication: Product used for unknown indication
     Route: 065
  6. SODIUM NITROPRUSSIDE [Concomitant]
     Active Substance: SODIUM NITROPRUSSIDE
     Indication: Product used for unknown indication
     Route: 065

REACTIONS (2)
  - Cardiac arrest [Unknown]
  - Hypotension [Unknown]
